FAERS Safety Report 4333235-7 (Version None)
Quarter: 2004Q1

REPORT INFORMATION
  Report Type: 
  Country: None (occurrence: None)
  Receive Date: 20040330
  Receipt Date: 20040318
  Transmission Date: 20041129
  Serious: Yes (Hospitalization)
  Sender: FDA-Public Use
  Company Number: 04P-062-0254015-00

PATIENT
  Age: 74 Year
  Sex: Male

DRUGS (4)
  1. UDRIK (MAVIK) (TRANDOLAPRIL) (TRADOLAPRIL) [Suspect]
     Indication: CORONARY ARTERY DISEASE
     Dosage: 0.5 MG, 1 IN 1 D, PER ORAL
     Route: 048
     Dates: end: 20030928
  2. GLYCERYL TRINITRATE [Suspect]
     Indication: CORONARY ARTERY DISEASE
     Dosage: 0.4 MG, AS REQUIRED, PER ORAL
     Route: 048
     Dates: end: 20030928
  3. MOLSIDOMINE (MOLSIDOMINE) [Suspect]
     Indication: CORONARY ARTERY DISEASE
     Dosage: 12 MG, 1 IN 1 D, PER ORAL
     Route: 048
     Dates: end: 20030928
  4. ASPIRIN [Concomitant]

REACTIONS (6)
  - BUNDLE BRANCH BLOCK RIGHT [None]
  - CHEST PAIN [None]
  - CIRCULATORY COLLAPSE [None]
  - DRUG INTERACTION [None]
  - HYPOTENSION [None]
  - MYOCARDIAL INFARCTION [None]
